FAERS Safety Report 15597013 (Version 1)
Quarter: 2018Q4

REPORT INFORMATION
  Report Type: Report from Study
  Country: US (occurrence: US)
  Receive Date: 20181108
  Receipt Date: 20181108
  Transmission Date: 20190205
  Serious: Yes (Other)
  Sender: FDA-Public Use
  Company Number: US-GILEAD-2018-0372279

PATIENT
  Age: 53 Year
  Sex: Male

DRUGS (1)
  1. AMBRISENTAN [Suspect]
     Active Substance: AMBRISENTAN
     Indication: PRODUCT USED FOR UNKNOWN INDICATION
     Dosage: 10 MG
     Route: 065
     Dates: start: 20161025

REACTIONS (2)
  - Product use issue [Not Recovered/Not Resolved]
  - HIV infection [Not Recovered/Not Resolved]

NARRATIVE: CASE EVENT DATE: 201810
